FAERS Safety Report 8744341 (Version 2)
Quarter: 2013Q4

REPORT INFORMATION
  Report Type: Report from Study
  Country: US (occurrence: US)
  Receive Date: 20120825
  Receipt Date: 20131101
  Transmission Date: 20140711
  Serious: No
  Sender: FDA-Public Use
  Company Number: US-009507513-1208USA001197

PATIENT
  Age: 25 Year
  Sex: Female

DRUGS (2)
  1. PEG-INTRON [Suspect]
     Indication: HEPATITIS C
     Dosage: UNK
     Dates: start: 20120713
  2. REBETOL [Suspect]
     Indication: HEPATITIS C
     Dosage: UNK
     Dates: start: 20120713

REACTIONS (8)
  - Burning sensation [Unknown]
  - Coordination abnormal [Unknown]
  - Pain in extremity [Unknown]
  - Dysgeusia [Unknown]
  - Memory impairment [Unknown]
  - Myalgia [Unknown]
  - Fatigue [Unknown]
  - Drug dose omission [Unknown]
